FAERS Safety Report 7943695-8 (Version None)
Quarter: 2011Q4

REPORT INFORMATION
  Report Type: 
  Country: None (occurrence: None)
  Receive Date: 20111128
  Receipt Date: 20111121
  Transmission Date: 20120403
  Serious: Yes (Death)
  Sender: FDA-Public Use
  Company Number: BE-ABBOTT-11P-013-0863218-00

PATIENT
  Sex: Female

DRUGS (1)
  1. PROGESTERONE [Suspect]
     Indication: MATERNAL EXPOSURE TIMING UNSPECIFIED
     Route: 064

REACTIONS (8)
  - HYPERGLYCAEMIA [None]
  - FOETAL EXPOSURE DURING PREGNANCY [None]
  - PULMONARY HAEMORRHAGE [None]
  - BRADYCARDIA [None]
  - PREMATURE BABY [None]
  - CARDIAC ARREST [None]
  - JAUNDICE NEONATAL [None]
  - APNOEA [None]
